FAERS Safety Report 19800151 (Version 3)
Quarter: 2021Q3

REPORT INFORMATION
  Report Type: Spontaneous
  Country: SE (occurrence: SE)
  Receive Date: 20210907
  Receipt Date: 20210913
  Transmission Date: 20211014
  Serious: Yes (Disabling)
  Sender: FDA-Public Use
  Company Number: SE-CELGENEUS-SWE-20210900449

PATIENT
  Age: 64 Year
  Sex: Female
  Weight: 54 kg

DRUGS (2)
  1. VIDAZA [Suspect]
     Active Substance: AZACITIDINE
     Dosage: POWDER FOR SUSPENSION FOR INJECTION
     Route: 065
  2. VIDAZA [Suspect]
     Active Substance: AZACITIDINE
     Indication: MYELODYSPLASTIC SYNDROME
     Dosage: 4.4643 MILLIGRAM/MILLILITERS
     Route: 058
     Dates: start: 20210503, end: 20210709

REACTIONS (1)
  - Polyneuropathy [Not Recovered/Not Resolved]

NARRATIVE: CASE EVENT DATE: 20210524
